FAERS Safety Report 14194100 (Version 1)
Quarter: 2017Q4

REPORT INFORMATION
  Report Type: Spontaneous
  Country: GB (occurrence: GB)
  Receive Date: 20171116
  Receipt Date: 20171116
  Transmission Date: 20180321
  Serious: Yes (Hospitalization)
  Sender: FDA-Public Use
  Company Number: GB-CIPLA LTD.-2017GB18807

PATIENT

DRUGS (6)
  1. OLANZAPINE. [Suspect]
     Active Substance: OLANZAPINE
     Indication: SCHIZOPHRENIA
     Dosage: 20 MG, A TOTAL OF 20 MG OVER THE 48 HOURS
     Route: 065
     Dates: start: 20140717
  2. LORAZEPAM. [Concomitant]
     Active Substance: LORAZEPAM
     Indication: SCHIZOPHRENIA
     Dosage: 1 MG, TID
     Route: 065
     Dates: start: 20140715
  3. LORAZEPAM. [Concomitant]
     Active Substance: LORAZEPAM
     Dosage: 12 MG, DAILY
     Route: 065
     Dates: start: 20140727
  4. LORAZEPAM. [Concomitant]
     Active Substance: LORAZEPAM
     Dosage: 20 MG, DAILY
     Route: 065
     Dates: start: 201408
  5. LORAZEPAM. [Concomitant]
     Active Substance: LORAZEPAM
     Indication: CATATONIA
     Dosage: 6 MG, DAILY
     Route: 065
     Dates: start: 201407
  6. OLANZAPINE. [Suspect]
     Active Substance: OLANZAPINE
     Indication: CATATONIA

REACTIONS (5)
  - Multiple organ dysfunction syndrome [Recovered/Resolved]
  - Rhabdomyolysis [Recovered/Resolved]
  - Acute kidney injury [Recovered/Resolved]
  - Pulmonary embolism [Recovered/Resolved]
  - Neuroleptic malignant syndrome [Recovered/Resolved]

NARRATIVE: CASE EVENT DATE: 2014
